FAERS Safety Report 9880540 (Version 2)
Quarter: 2014Q1

REPORT INFORMATION
  Report Type: Spontaneous
  Country: FR (occurrence: FR)
  Receive Date: 20140207
  Receipt Date: 20140214
  Transmission Date: 20141002
  Serious: Yes (Hospitalization)
  Sender: FDA-Public Use
  Company Number: FR-JNJFOC-20140119455

PATIENT
  Age: 22 Year
  Sex: Female

DRUGS (6)
  1. HALDOL [Suspect]
     Indication: BIPOLAR DISORDER
     Route: 048
  2. LARGACTIL [Suspect]
     Indication: BIPOLAR DISORDER
     Route: 048
  3. LARGACTIL [Suspect]
     Indication: BIPOLAR DISORDER
     Dosage: APART FROM 3 TIMES A DAY, DOSE IN EVENING IF THE PATIENT DEMANDS
     Route: 048
  4. NOROXINE [Concomitant]
     Indication: URINARY TRACT INFECTION
     Route: 048
  5. TERALITHE [Concomitant]
     Indication: BIPOLAR DISORDER
     Dosage: 3.5 TABLETS IN THE EVENING
     Route: 048
  6. VALIUM [Concomitant]
     Indication: BIPOLAR DISORDER
     Dosage: 10 MG IN THE EVENING AND 20 MG 3 TIMES A DAY ON DEMAND
     Route: 048

REACTIONS (10)
  - Urinary retention [Recovered/Resolved]
  - Tachycardia [Unknown]
  - Altered state of consciousness [Unknown]
  - Onychomycosis [Unknown]
  - Speech disorder [Unknown]
  - Dysarthria [Unknown]
  - Hyperhidrosis [Unknown]
  - Somnolence [Unknown]
  - Tachypnoea [Unknown]
  - Dehydration [Unknown]
